FAERS Safety Report 5896702-0 (Version None)
Quarter: 2008Q3

REPORT INFORMATION
  Report Type: 
  Country: None (occurrence: None)
  Receive Date: 20080924
  Receipt Date: 20080912
  Transmission Date: 20090109
  Serious: Yes (Death, Other)
  Sender: FDA-Public Use
  Company Number: JP-PFIZER INC-2008078181

PATIENT

DRUGS (1)
  1. ZITHROMAX [Suspect]
     Route: 048

REACTIONS (2)
  - DEATH [None]
  - DRUG INEFFECTIVE [None]
